FAERS Safety Report 4989984-0 (Version None)
Quarter: 2006Q2

REPORT INFORMATION
  Report Type: 
  Country: None (occurrence: None)
  Receive Date: 20060428
  Receipt Date: 20060417
  Transmission Date: 20061013
  Serious: Yes (Hospitalization)
  Sender: FDA-Public Use
  Company Number: 200610495GDS

PATIENT
  Age: 64 Year
  Sex: Male
  Weight: 84.6 kg

DRUGS (3)
  1. CIPROFLOXACIN [Suspect]
     Indication: DIVERTICULITIS
     Dosage: 500 MG BID ORAL
     Route: 048
     Dates: start: 20050226, end: 20050312
  2. METRONIDAZOLE [Suspect]
     Indication: DIVERTICULITIS
     Dosage: 500 MG TID ORAL
     Route: 048
     Dates: start: 20050226, end: 20050312
  3. OMEPRAZOLE [Concomitant]

REACTIONS (6)
  - ABDOMINAL PAIN [None]
  - ABDOMINAL PAIN UPPER [None]
  - ALANINE AMINOTRANSFERASE INCREASED [None]
  - ASPARTATE AMINOTRANSFERASE INCREASED [None]
  - BLOOD AMYLASE INCREASED [None]
  - LIPASE INCREASED [None]
